FAERS Safety Report 9615192 (Version 1)
Quarter: 2013Q4

REPORT INFORMATION
  Report Type: Spontaneous
  Country: US (occurrence: None)
  Receive Date: 20131009
  Receipt Date: 20131009
  Transmission Date: 20140711
  Serious: No
  Sender: FDA-Public Use
  Company Number: None

PATIENT
  Age: 81 Year
  Sex: Male
  Weight: 77.11 kg

DRUGS (6)
  1. ERIVEDGE [Suspect]
     Indication: BASAL CELL CARCINOMA
     Dosage: 28 PILLS
     Route: 048
     Dates: start: 20130627, end: 20130731
  2. LISINOPRIL [Concomitant]
  3. SIMVASTATIN [Concomitant]
  4. BRILINTA [Concomitant]
  5. ASPIRIN [Concomitant]
  6. CENTRUM SILVER [Concomitant]

REACTIONS (6)
  - Decreased appetite [None]
  - Ageusia [None]
  - Constipation [None]
  - Alopecia [None]
  - Weight decreased [None]
  - Muscle spasms [None]
